FAERS Safety Report 7550444-4 (Version None)
Quarter: 2011Q2

REPORT INFORMATION
  Report Type: 
  Country: None (occurrence: None)
  Receive Date: 20110615
  Receipt Date: 20110228
  Transmission Date: 20111010
  Serious: No
  Sender: FDA-Public Use
  Company Number: US-BAUSCH-2011BL001222

PATIENT
  Sex: Female

DRUGS (5)
  1. BESIVANCE [Suspect]
     Route: 047
     Dates: start: 20110227, end: 20110228
  2. BESIVANCE [Suspect]
     Route: 047
     Dates: start: 20110227, end: 20110228
  3. BESIVANCE [Suspect]
     Indication: ANTIBIOTIC PROPHYLAXIS
     Route: 047
     Dates: start: 20110224, end: 20110226
  4. BESIVANCE [Suspect]
     Indication: OFF LABEL USE
     Route: 047
     Dates: start: 20110224, end: 20110226
  5. PRED FORTE [Concomitant]
     Indication: POSTOPERATIVE CARE
     Route: 047
     Dates: start: 20110224

REACTIONS (2)
  - TOXICITY TO VARIOUS AGENTS [None]
  - CORNEAL INFILTRATES [None]
